FAERS Safety Report 11128465 (Version 2)
Quarter: 2015Q3

REPORT INFORMATION
  Report Type: Spontaneous
  Country: PT (occurrence: None)
  Receive Date: 20150519
  Receipt Date: 20150729
  Transmission Date: 20151125
  Serious: Yes (Other)
  Sender: FDA-Public Use
  Company Number: DEP_02816_2015

PATIENT
  Age: 57 Year
  Sex: Female

DRUGS (18)
  1. ASPEGIC [Concomitant]
     Active Substance: ASPIRIN DL-LYSINE
  2. LYRICA [Concomitant]
     Active Substance: PREGABALIN
  3. DAFLON [Concomitant]
     Active Substance: DIOSMIN\HESPERIDIN
  4. JANUMET [Concomitant]
     Active Substance: METFORMIN HYDROCHLORIDE\SITAGLIPTIN PHOSPHATE
  5. DOL-U-RON [Concomitant]
  6. KREON [Concomitant]
     Active Substance: PANCRELIPASE
  7. AMOROLFINA [Concomitant]
  8. MAGNESIOCARD [Concomitant]
     Active Substance: MAGNESIUM ASPARTATE HYDROCHLORIDE
  9. ASPIRINA [Concomitant]
     Active Substance: ASPIRIN
  10. NEXIUM [Concomitant]
     Active Substance: ESOMEPRAZOLE MAGNESIUM
  11. NOLOTIL [Concomitant]
     Active Substance: METAMIZOLE
  12. LEXOTAN [Concomitant]
     Active Substance: BROMAZEPAM
  13. PALEXIA [Suspect]
     Active Substance: TAPENTADOL HYDROCHLORIDE
     Indication: SURGICAL FAILURE
     Dosage: (100 MG QD ORAL)
     Route: 048
     Dates: start: 201411, end: 201411
  14. TRANSTEC [Concomitant]
     Active Substance: BUPRENORPHINE
  15. FLUCONAZOLE ACTAVIS [Concomitant]
  16. MICARDIS PLUS [Concomitant]
     Active Substance: HYDROCHLOROTHIAZIDE\TELMISARTAN
  17. GLUCOSAMIN PLUS CHONDROITIN [Concomitant]
  18. CIPROFLOXACIN. [Concomitant]
     Active Substance: CIPROFLOXACIN

REACTIONS (1)
  - Hypertension [None]

NARRATIVE: CASE EVENT DATE: 201411
